FAERS Safety Report 8404558 (Version 2)
Quarter: 2012Q4

REPORT INFORMATION
  Report Type: 
  Country: DE (occurrence: DE)
  Receive Date: 20120214
  Receipt Date: 20121010
  Transmission Date: 20130627
  Serious: Yes (Hospitalization, Other)
  Sender: FDA-Public Use
  Company Number: DE-PFIZER INC-2012034361

PATIENT
  Age: 76 Year
  Sex: Male

DRUGS (9)
  1. CORDAREX [Suspect]
     Indication: ATRIAL FIBRILLATION
     Dosage: 200 mg per day
     Route: 048
     Dates: start: 2006, end: 201202
  2. RAMIPRIL [Concomitant]
     Dosage: UNK
  3. AMLODIPINE [Concomitant]
     Dosage: UNK
  4. ACETYLSALICYLIC ACID [Concomitant]
     Dosage: UNK
  5. TORASEMIDE [Concomitant]
     Dosage: UNK
  6. PANTOPRAZOLE [Concomitant]
     Dosage: UNK
  7. METOPROLOL [Concomitant]
     Dosage: UNK
  8. SIMVASTATIN [Concomitant]
     Dosage: UNK
  9. BISOPROLOL [Concomitant]
     Dosage: UNK

REACTIONS (1)
  - Organising pneumonia [Recovering/Resolving]
